FAERS Safety Report 16070363 (Version 1)
Quarter: 2019Q1

REPORT INFORMATION
  Report Type: Report from Study
  Country: US (occurrence: US)
  Receive Date: 20190314
  Receipt Date: 20190314
  Transmission Date: 20190418
  Serious: Yes (Death, Other)
  Sender: FDA-Public Use
  Company Number: US-GILEAD-2019-0396431

PATIENT
  Age: 76 Year
  Sex: Male

DRUGS (3)
  1. AMBRISENTAN [Suspect]
     Active Substance: AMBRISENTAN
     Indication: PRODUCT USED FOR UNKNOWN INDICATION
     Dosage: 10 MG, QD
     Route: 065
     Dates: start: 20181018
  2. WARFARIN [Concomitant]
     Active Substance: WARFARIN
  3. OPSUMIT [Concomitant]
     Active Substance: MACITENTAN

REACTIONS (1)
  - Death [Fatal]

NARRATIVE: CASE EVENT DATE: 20190312
